FAERS Safety Report 25269220 (Version 1)
Quarter: 2025Q2

REPORT INFORMATION
  Report Type: Spontaneous
  Country: SA (occurrence: SA)
  Receive Date: 20250505
  Receipt Date: 20250505
  Transmission Date: 20250717
  Serious: Yes (Life-Threatening, Hospitalization, Other)
  Sender: PFIZER
  Company Number: SA-PFIZER INC-PV202500041685

PATIENT
  Age: 30 Year
  Sex: Female

DRUGS (4)
  1. METHYLPREDNISOLONE SODIUM SUCCINATE [Suspect]
     Active Substance: METHYLPREDNISOLONE SODIUM SUCCINATE
     Indication: Asthma
     Route: 042
  2. IPRATROPIUM BROMIDE [Concomitant]
     Active Substance: IPRATROPIUM BROMIDE
     Indication: Asthma
  3. OXYGEN [Concomitant]
     Active Substance: OXYGEN
     Indication: Oxygen therapy
     Route: 045
  4. ALBUTEROL [Concomitant]
     Active Substance: ALBUTEROL
     Indication: Childhood asthma

REACTIONS (4)
  - Anaphylactic reaction [Recovering/Resolving]
  - Respiratory distress [Recovering/Resolving]
  - Respiratory acidosis [Recovering/Resolving]
  - Condition aggravated [Recovering/Resolving]
